FAERS Safety Report 11933578 (Version 2)
Quarter: 2016Q2

REPORT INFORMATION
  Report Type: Spontaneous
  Country: US (occurrence: US)
  Receive Date: 20160121
  Receipt Date: 20160627
  Transmission Date: 20160815
  Serious: Yes (Other)
  Sender: FDA-Public Use
  Company Number: US-UCBSA-2016001766

PATIENT
  Age: 21 Year
  Sex: Female

DRUGS (12)
  1. KEPPRA [Suspect]
     Active Substance: LEVETIRACETAM
     Dosage: 1500 MG, ONCE DAILY (QD)
     Route: 048
  2. LAMICTAL [Concomitant]
     Active Substance: LAMOTRIGINE
     Indication: SEIZURE
     Dosage: 250 MG, 2X/DAY (BID)
     Route: 048
  3. FOLIC ACID. [Concomitant]
     Active Substance: FOLIC ACID
     Indication: PRODUCT USED FOR UNKNOWN INDICATION
     Dosage: 1 MG TABLET 4 DAILY
     Route: 048
     Dates: start: 20101104
  4. KEPPRA [Suspect]
     Active Substance: LEVETIRACETAM
     Indication: SEIZURE
     Dosage: 1000 MG, ONCE DAILY (QD)
     Route: 048
  5. PITOCIN [Concomitant]
     Active Substance: OXYTOCIN
     Indication: LABOUR INDUCTION
     Dosage: UNK
     Dates: start: 20110412
  6. VITAMIN K [Concomitant]
     Active Substance: PHYTONADIONE
     Indication: PRODUCT USED FOR UNKNOWN INDICATION
     Dosage: 100 ?G, ONCE DAILY (QD)
     Route: 048
     Dates: start: 20110112
  7. MAGNESIUM SULFATE. [Concomitant]
     Active Substance: MAGNESIUM SULFATE
     Indication: CONVULSION PROPHYLAXIS
     Dosage: UNK
     Dates: start: 20110412
  8. HEMABATE [Concomitant]
     Active Substance: CARBOPROST TROMETHAMINE
     Indication: PRODUCT USED FOR UNKNOWN INDICATION
     Dosage: UNK
     Dates: start: 201104
  9. ZONEGRAN [Concomitant]
     Active Substance: ZONISAMIDE
     Indication: SEIZURE
     Dosage: 300 MG, 2X/DAY (BID)
     Route: 048
  10. RHOGAM [Concomitant]
     Active Substance: HUMAN RHO(D) IMMUNE GLOBULIN
     Indication: PRODUCT USED FOR UNKNOWN INDICATION
     Dosage: UNK
     Dates: start: 20110202
  11. MISOPROSTOL. [Concomitant]
     Active Substance: MISOPROSTOL
     Indication: PRODUCT USED FOR UNKNOWN INDICATION
     Dosage: UNK
     Dates: start: 201104
  12. NAROPIN WITH FENTANYL [Concomitant]
     Indication: PAIN
     Dosage: UNK
     Dates: start: 201104

REACTIONS (8)
  - Postpartum haemorrhage [Unknown]
  - Pre-eclampsia [Recovered/Resolved]
  - Vaginal laceration [Unknown]
  - Gestational hypertension [Recovered/Resolved]
  - Generalised tonic-clonic seizure [Unknown]
  - Anaemia [Unknown]
  - Drug dose omission [Unknown]
  - Pregnancy [Unknown]

NARRATIVE: CASE EVENT DATE: 2010
